FAERS Safety Report 7496355-4 (Version None)
Quarter: 2011Q2

REPORT INFORMATION
  Report Type: 
  Country: None (occurrence: None)
  Receive Date: 20110513
  Receipt Date: 20110506
  Transmission Date: 20111010
  Serious: Yes (Hospitalization)
  Sender: FDA-Public Use
  Company Number: 2010SP004036

PATIENT
  Age: 20 Year
  Sex: Female
  Weight: 77.1115 kg

DRUGS (2)
  1. NUVARING [Suspect]
     Indication: CONTRACEPTION
     Dates: start: 20071201, end: 20080101
  2. NUVARING [Suspect]
     Indication: CONTRACEPTION
     Dates: start: 20061201

REACTIONS (10)
  - PLEURISY [None]
  - INITIAL INSOMNIA [None]
  - PULMONARY EMBOLISM [None]
  - LUNG INFILTRATION [None]
  - BLOOD IRON DECREASED [None]
  - PULMONARY INFARCTION [None]
  - HYPOCHROMIC ANAEMIA [None]
  - TRANSFERRIN SATURATION DECREASED [None]
  - PREGNANCY WITH CONTRACEPTIVE DEVICE [None]
  - DRUG EXPOSURE DURING PREGNANCY [None]
